FAERS Safety Report 21138995 (Version 1)
Quarter: 2022Q3

REPORT INFORMATION
  Report Type: Spontaneous
  Country: JP (occurrence: None)
  Receive Date: 20220727
  Receipt Date: 20220727
  Transmission Date: 20221027
  Serious: Yes (Hospitalization)
  Sender: FDA-Public Use
  Company Number: 2022A264224

PATIENT
  Age: 85 Year
  Sex: Male
  Weight: 65 kg

DRUGS (11)
  1. BREZTRI [Suspect]
     Active Substance: BUDESONIDE\FORMOTEROL\GLYCOPYRROLATE
     Indication: Chronic obstructive pulmonary disease
     Route: 055
     Dates: end: 20220505
  2. NEXIUM [Concomitant]
     Active Substance: ESOMEPRAZOLE MAGNESIUM
     Dosage: DOSE UNKNOWN
     Route: 048
  3. LEVOCETIRIZINE HYDROCHLORIDE [Concomitant]
     Active Substance: LEVOCETIRIZINE HYDROCHLORIDE
     Dosage: DOSE UNKNOWN
     Route: 048
  4. MONTELUKAST [Concomitant]
     Active Substance: MONTELUKAST SODIUM
     Dosage: DOSE UNKNOWN
     Route: 048
  5. ATORVASTATIN OD [Concomitant]
     Dosage: DOSE UNKNOWN
     Route: 048
  6. TENELIA OD [Concomitant]
     Dosage: DOSE UNKNOWN
     Route: 048
  7. QUERCUS SALICINA STEM [Concomitant]
     Active Substance: QUERCUS SALICINA STEM
     Dosage: DOSE UNKNOWN
     Route: 048
  8. CARBOCYSTEINE [Concomitant]
     Active Substance: CARBOCYSTEINE
     Dosage: DOSE UNKNOWN
     Route: 048
  9. AZITHROMYCIN DIHYDRATE [Concomitant]
     Active Substance: AZITHROMYCIN DIHYDRATE
     Dosage: DOSE UNKNOWN
     Route: 048
     Dates: start: 20220430, end: 20220502
  10. AMPICILLIN SODIUM\SULBACTAM SODIUM [Concomitant]
     Active Substance: AMPICILLIN SODIUM\SULBACTAM SODIUM
     Dosage: DOSE UNKNOWN
     Route: 042
     Dates: start: 20220430, end: 20220510
  11. CHOREITO [Concomitant]
     Dosage: DOSE UNKNOWN
     Route: 065

REACTIONS (5)
  - Chronic obstructive pulmonary disease [Recovering/Resolving]
  - Urinary retention [Recovered/Resolved]
  - Haematuria [Recovering/Resolving]
  - Underdose [Unknown]
  - Drug ineffective [Unknown]

NARRATIVE: CASE EVENT DATE: 20220430
